FAERS Safety Report 14848228 (Version 3)
Quarter: 2018Q3

REPORT INFORMATION
  Report Type: Spontaneous
  Country: DE (occurrence: DE)
  Receive Date: 20180504
  Receipt Date: 20180822
  Transmission Date: 20181010
  Serious: Yes (Other)
  Sender: FDA-Public Use
  Company Number: DE-JNJFOC-20180437265

PATIENT
  Sex: Male

DRUGS (2)
  1. REGAINE MANNER SCHAUM 5% [Suspect]
     Active Substance: MINOXIDIL
     Route: 061
  2. REGAINE MANNER SCHAUM 5% [Suspect]
     Active Substance: MINOXIDIL
     Indication: PRODUCT USED FOR UNKNOWN INDICATION
     Route: 061
     Dates: end: 201712

REACTIONS (7)
  - Blood pressure decreased [Recovered/Resolved]
  - Application site irritation [Recovered/Resolved]
  - Dizziness [Recovered/Resolved]
  - Arrhythmia [Recovered/Resolved]
  - Cardiac arrest [Recovered/Resolved]
  - Nerve conduction studies abnormal [Recovered/Resolved]
  - Contraindicated product administered [Unknown]
